FAERS Safety Report 25774940 (Version 2)
Quarter: 2025Q4

REPORT INFORMATION
  Report Type: Report from Study
  Country: US (occurrence: US)
  Receive Date: 20250908
  Receipt Date: 20251015
  Transmission Date: 20260118
  Serious: Yes (Other)
  Sender: ELI LILLY AND COMPANY
  Company Number: US-ELI_LILLY_AND_COMPANY-US202509000776

PATIENT
  Age: 72 Year
  Sex: Female

DRUGS (1)
  1. KISUNLA [Suspect]
     Active Substance: DONANEMAB-AZBT
     Indication: Product used for unknown indication
     Dosage: UNK, UNKNOWN (1ST INFUSION)
     Route: 065
     Dates: start: 20250708

REACTIONS (5)
  - Retinal detachment [Not Recovered/Not Resolved]
  - Cerebral microhaemorrhage [Not Recovered/Not Resolved]
  - Seizure [Unknown]
  - Feeling abnormal [Unknown]
  - Asthenia [Unknown]

NARRATIVE: CASE EVENT DATE: 20250814
